FAERS Safety Report 8577223 (Version 4)
Quarter: 2013Q3

REPORT INFORMATION
  Report Type: Spontaneous
  Country: US (occurrence: US)
  Receive Date: 20120524
  Receipt Date: 20130910
  Transmission Date: 20140515
  Serious: No
  Sender: FDA-Public Use
  Company Number: US-PFIZER INC-2012123762

PATIENT
  Sex: Female

DRUGS (1)
  1. CHANTIX [Suspect]
     Dosage: 1 MG, 2X/DAY (1 IN AM + 1 IN PM)

REACTIONS (6)
  - Fear [Unknown]
  - Hot flush [Unknown]
  - Asthenia [Unknown]
  - Night sweats [Unknown]
  - Anxiety [Unknown]
  - Intentional drug misuse [Unknown]
